FAERS Safety Report 10420492 (Version 1)
Quarter: 2014Q3

REPORT INFORMATION
  Report Type: Spontaneous
  Country: US (occurrence: None)
  Receive Date: 20140709
  Receipt Date: 20140709
  Transmission Date: 20150326
  Serious: Yes (Hospitalization)
  Sender: FDA-Public Use
  Company Number: PHEH2014US005526

PATIENT
  Sex: Male

DRUGS (6)
  1. FRUSEMIDE (FUROSEMIDE) [Concomitant]
     Active Substance: FUROSEMIDE
  2. LOVASTATIN. [Concomitant]
     Active Substance: LOVASTATIN
  3. PRAZOSIN [Concomitant]
     Active Substance: PRAZOSIN
  4. NIFEDIPINE. [Concomitant]
     Active Substance: NIFEDIPINE
  5. GLEEVEC [Suspect]
     Active Substance: IMATINIB MESYLATE
     Indication: CHRONIC MYELOID LEUKAEMIA
     Route: 048
     Dates: start: 20130221, end: 20130402
  6. OMEPRAZOLE. [Concomitant]
     Active Substance: OMEPRAZOLE

REACTIONS (5)
  - Decreased appetite [None]
  - Hepatitis B [None]
  - Alanine aminotransferase increased [None]
  - Oedema peripheral [None]
  - Aspartate aminotransferase increased [None]

NARRATIVE: CASE EVENT DATE: 20130418
